FAERS Safety Report 9319256 (Version 1)
Quarter: 2013Q2

REPORT INFORMATION
  Report Type: Spontaneous
  Country: US (occurrence: US)
  Receive Date: 20130530
  Receipt Date: 20130530
  Transmission Date: 20140414
  Serious: Yes (Hospitalization)
  Sender: FDA-Public Use
  Company Number: US-VIIV HEALTHCARE LIMITED-A0988961A

PATIENT
  Age: 0 Year
  Sex: Female

DRUGS (2)
  1. RETROVIR [Suspect]
     Indication: ANTIVIRAL PROPHYLAXIS
     Route: 048
     Dates: start: 20120806, end: 20120809
  2. ANTIBIOTIC (UNKNOWN NAME) [Concomitant]

REACTIONS (2)
  - Jaundice [Not Recovered/Not Resolved]
  - Overdose [Unknown]
